FAERS Safety Report 16541812 (Version 1)
Quarter: 2019Q3

REPORT INFORMATION
  Report Type: Report from Study
  Country: FR (occurrence: FR)
  Receive Date: 20190708
  Receipt Date: 20190708
  Transmission Date: 20191004
  Serious: Yes (Other)
  Sender: FDA-Public Use
  Company Number: FR-MYLANLABS-2019M1062484

PATIENT

DRUGS (3)
  1. PANITUMUMAB [Suspect]
     Active Substance: PANITUMUMAB
     Indication: ANAL SQUAMOUS CELL CARCINOMA
     Dosage: ON DAYS 1, 15 AND 29
     Route: 041
  2. FLUOROURACIL. [Suspect]
     Active Substance: FLUOROURACIL
     Indication: ANAL SQUAMOUS CELL CARCINOMA
     Dosage: ON DAYS 1-4 AND ON DAYS 29-32
     Route: 041
  3. MITOMYCIN C [Suspect]
     Active Substance: MITOMYCIN
     Indication: ANAL SQUAMOUS CELL CARCINOMA
     Dosage: ON DAYS 1 AND 29
     Route: 040

REACTIONS (2)
  - Decreased appetite [Unknown]
  - Fatigue [Unknown]
